FAERS Safety Report 6216753-6 (Version None)
Quarter: 2009Q2

REPORT INFORMATION
  Report Type: 
  Country: None (occurrence: None)
  Receive Date: 20090603
  Receipt Date: 20090603
  Transmission Date: 20091009
  Serious: No
  Sender: FDA-Public Use
  Company Number: None

PATIENT
  Age: 87 Year
  Sex: Male
  Weight: 62.73 kg

DRUGS (1)
  1. CEFTRIAXONE [Suspect]
     Dosage: 1 GM ONCE IV
     Route: 042
     Dates: start: 20081107, end: 20081107

REACTIONS (4)
  - PRURITUS [None]
  - RASH [None]
  - URTICARIA [None]
  - WHEEZING [None]
